FAERS Safety Report 7124215-7 (Version None)
Quarter: 2010Q4

REPORT INFORMATION
  Report Type: 
  Country: None (occurrence: None)
  Receive Date: 20101126
  Receipt Date: 20101119
  Transmission Date: 20110411
  Serious: Yes (Hospitalization)
  Sender: FDA-Public Use
  Company Number: US-AMGEN-USASP2010005959

PATIENT

DRUGS (1)
  1. ENBREL [Suspect]
     Indication: RHEUMATOID ARTHRITIS
     Dates: start: 20100915, end: 20101103

REACTIONS (4)
  - ASTHENIA [None]
  - CHEST PAIN [None]
  - DIZZINESS [None]
  - WHITE BLOOD CELL COUNT DECREASED [None]
